FAERS Safety Report 23725657 (Version 1)
Quarter: 2024Q2

REPORT INFORMATION
  Report Type: Spontaneous
  Country: GB (occurrence: GB)
  Receive Date: 20240410
  Receipt Date: 20240410
  Transmission Date: 20240716
  Serious: Yes (Other)
  Sender: FDA-Public Use
  Company Number: None

PATIENT

DRUGS (5)
  1. PREDNISOLONE [Suspect]
     Active Substance: PREDNISOLONE
     Indication: Connective tissue disorder
     Dosage: 10 MG, QD (BEFORE THAT 20MG DAILY IN THE BEGINNING DECREASEDTO 10MG NOW) TABLET
     Dates: start: 20231220
  2. PREDNISOLONE [Suspect]
     Active Substance: PREDNISOLONE
     Dosage: 20 MG, QD (BEFORE THAT 20MG DAILY) TABLET
  3. METHOTREXATE [Suspect]
     Active Substance: METHOTREXATE
     Indication: Connective tissue disorder
     Dosage: 20 MG (INCREASED TO THAT IN FEBRUARY, BEFORE THAT IT WAS 15MG )
  4. METHOTREXATE [Suspect]
     Active Substance: METHOTREXATE
     Dosage: 15 MG
     Dates: start: 20231223
  5. HYDROXYCHLOROQUINE [Concomitant]
     Active Substance: HYDROXYCHLOROQUINE
     Indication: Connective tissue disorder
     Dosage: UNK
     Dates: start: 202207

REACTIONS (1)
  - Poor quality sleep [Not Recovered/Not Resolved]

NARRATIVE: CASE EVENT DATE: 20240101
